FAERS Safety Report 23933964 (Version 1)
Quarter: 2024Q2

REPORT INFORMATION
  Report Type: Spontaneous
  Country: US (occurrence: US)
  Receive Date: 20240603
  Receipt Date: 20240603
  Transmission Date: 20240716
  Serious: No
  Sender: FDA-Public Use
  Company Number: US-DAIICHI SANKYO, INC.-DSU-2024-108843AA

PATIENT
  Sex: Female

DRUGS (2)
  1. TURALIO [Suspect]
     Active Substance: PEXIDARTINIB HYDROCHLORIDE
     Indication: Synovitis
     Dosage: 125 MG, 2 CAPSULES BY MOUTH TWICE DAILY
     Route: 048
     Dates: start: 20240210
  2. TURALIO [Suspect]
     Active Substance: PEXIDARTINIB HYDROCHLORIDE
     Indication: Giant cell tumour of tendon sheath

REACTIONS (3)
  - Adverse drug reaction [Unknown]
  - Drug intolerance [Unknown]
  - Therapy cessation [Not Recovered/Not Resolved]
